FAERS Safety Report 11762388 (Version 2)
Quarter: 2016Q1

REPORT INFORMATION
  Report Type: Report from Study
  Country: US (occurrence: US)
  Receive Date: 20151120
  Receipt Date: 20160114
  Transmission Date: 20160525
  Serious: Yes (Hospitalization)
  Sender: FDA-Public Use
  Company Number: US-EXELIXIS-CABO-15005809

PATIENT
  Age: 34 Year
  Sex: Male
  Weight: 154 kg

DRUGS (11)
  1. CALCIUM [Concomitant]
     Active Substance: CALCIUM
  2. TYLENOL [Concomitant]
     Active Substance: ACETAMINOPHEN
  3. LEVOTHYROXINE. [Concomitant]
     Active Substance: LEVOTHYROXINE
  4. COMETRIQ [Suspect]
     Active Substance: CABOZANTINIB S-MALATE
     Indication: THYROID CANCER
     Dosage: 140 MG, QD
     Route: 048
     Dates: start: 20151026, end: 20151106
  5. XARELTO [Concomitant]
     Active Substance: RIVAROXABAN
  6. MAGNESIUM [Concomitant]
     Active Substance: MAGNESIUM
  7. DESMOPRESSIN [Concomitant]
     Active Substance: DESMOPRESSIN
  8. TESTOSTERONE. [Concomitant]
     Active Substance: TESTOSTERONE
  9. LUNESTA [Concomitant]
     Active Substance: ESZOPICLONE
  10. XANAX [Concomitant]
     Active Substance: ALPRAZOLAM
  11. OMEPRAZOLE. [Concomitant]
     Active Substance: OMEPRAZOLE

REACTIONS (3)
  - Drug intolerance [Unknown]
  - Migraine [Unknown]
  - Hypertension [Unknown]

NARRATIVE: CASE EVENT DATE: 20151104
